FAERS Safety Report 17446703 (Version 8)
Quarter: 2020Q2

REPORT INFORMATION
  Report Type: Spontaneous
  Country: US (occurrence: US)
  Receive Date: 20200221
  Receipt Date: 20200611
  Transmission Date: 20200713
  Serious: No
  Sender: FDA-Public Use
  Company Number: US-STRONGBRIDGE BIOPHARMA-2020-STR-000050

PATIENT
  Age: 43 Year
  Sex: Male

DRUGS (2)
  1. KEVEYIS [Suspect]
     Active Substance: DICHLORPHENAMIDE
     Dosage: 25 MG, BID
     Route: 048
     Dates: start: 20200214, end: 202006
  2. KEVEYIS [Suspect]
     Active Substance: DICHLORPHENAMIDE
     Indication: FAMILIAL PERIODIC PARALYSIS
     Dosage: 25 MG, BID
     Route: 048
     Dates: start: 20200214

REACTIONS (18)
  - Disturbance in attention [Unknown]
  - Anxiety [Unknown]
  - Paraesthesia [Unknown]
  - Paranasal sinus discomfort [Unknown]
  - Blood chloride abnormal [Unknown]
  - Back pain [Unknown]
  - Restlessness [Unknown]
  - Restlessness [Not Recovered/Not Resolved]
  - Syncope [Unknown]
  - Carbon dioxide abnormal [Unknown]
  - Intentional product misuse [Unknown]
  - Fatigue [Not Recovered/Not Resolved]
  - Fatigue [Unknown]
  - Oropharyngeal pain [Unknown]
  - Palpitations [Unknown]
  - Disease recurrence [Unknown]
  - Gastrointestinal pain [Unknown]
  - Insomnia [Unknown]

NARRATIVE: CASE EVENT DATE: 20200217
